FAERS Safety Report 7335872-4 (Version None)
Quarter: 2011Q1

REPORT INFORMATION
  Report Type: 
  Country: None (occurrence: None)
  Receive Date: 20110307
  Receipt Date: 20110223
  Transmission Date: 20110831
  Serious: Yes (Hospitalization)
  Sender: FDA-Public Use
  Company Number: FR-ASTRAZENECA-2011SE11296

PATIENT
  Age: 68 Year
  Sex: Female
  Weight: 108 kg

DRUGS (11)
  1. FULVESTRANT [Suspect]
     Dosage: 500 MG ON DAY ONE
     Route: 030
     Dates: start: 20080806
  2. INDAPAMIDE [Concomitant]
     Indication: HYPERTENSION
  3. FULVESTRANT [Suspect]
     Dosage: 250 MG ON DAY ONE OF CYCLE TWO
     Route: 030
  4. INVESTIGATIONAL DRUG [Suspect]
     Indication: BREAST CANCER METASTATIC
     Dates: start: 20080807, end: 20100216
  5. PARACETAMOL [Concomitant]
     Indication: PROPHYLAXIS
  6. FULVESTRANT [Suspect]
     Dosage: 250 MG EVERY 28 DAYS FOR THE TREATMENT OF AROMATASE INHIBITORS RESISTANT METASTATIC BREAST CANCER
     Route: 030
     Dates: end: 20100203
  7. LERCANIDIPINE [Concomitant]
     Indication: HYPERTENSION
  8. FULVESTRANT [Suspect]
     Dosage: 250 MG ON DAY 15
     Route: 030
     Dates: start: 20080821
  9. PANTOPRAZOLE [Concomitant]
  10. MONTELUKAST SODIUM [Concomitant]
     Indication: PROPHYLAXIS
  11. ATORVASTATIN CALCIUM [Concomitant]
     Indication: HYPERCHOLESTEROLAEMIA

REACTIONS (1)
  - CEREBROVASCULAR ACCIDENT [None]
